FAERS Safety Report 18798748 (Version 1)
Quarter: 2021Q1

REPORT INFORMATION
  Report Type: Spontaneous
  Country: US (occurrence: US)
  Receive Date: 20210127
  Receipt Date: 20210127
  Transmission Date: 20210419
  Serious: Yes (Life-Threatening, Hospitalization, Disabling)
  Sender: FDA-Public Use
  Company Number: None

PATIENT
  Age: 73 Year
  Sex: Female
  Weight: 33.75 kg

DRUGS (1)
  1. RITUXAN [Suspect]
     Active Substance: RITUXIMAB
     Indication: RHEUMATOID ARTHRITIS
     Dosage: ?          OTHER FREQUENCY:TWO TIMES A YEAR;?
     Route: 042
     Dates: start: 20171201, end: 20201203

REACTIONS (3)
  - Cognitive disorder [None]
  - Amnesia [None]
  - Visual impairment [None]

NARRATIVE: CASE EVENT DATE: 20201218
